FAERS Safety Report 7579849-2 (Version None)
Quarter: 2011Q2

REPORT INFORMATION
  Report Type: 
  Country: None (occurrence: None)
  Receive Date: 20110629
  Receipt Date: 20110621
  Transmission Date: 20111010
  Serious: Yes (Disabling)
  Sender: FDA-Public Use
  Company Number: JP-ABBOTT-11P-087-0734235-00

PATIENT
  Sex: Female

DRUGS (7)
  1. RIFAMPICIN [Suspect]
     Indication: ATYPICAL MYCOBACTERIAL INFECTION
     Dosage: DAILY DOSE: 450MG
     Route: 048
     Dates: start: 20110303, end: 20110524
  2. ETHAMBUTOL HYDROCHLORIDE [Concomitant]
     Indication: ATYPICAL MYCOBACTERIAL INFECTION
     Dosage: DAILY DOSE: 750MG
     Route: 048
     Dates: start: 20110303, end: 20110524
  3. BONALON [Concomitant]
     Indication: PRODUCT USED FOR UNKNOWN INDICATION
     Route: 048
     Dates: start: 20110303
  4. GASMOTIN [Concomitant]
     Indication: DYSPEPSIA
     Dosage: DAILY DOSE: 15MG
     Route: 048
     Dates: start: 20110303
  5. CLARITHROMYCIN [Suspect]
     Indication: ATYPICAL MYCOBACTERIAL INFECTION
     Dosage: DAILY DOSE: 800MG
     Route: 048
     Dates: start: 20110303, end: 20110524
  6. MAGNESIUM OXIDE [Concomitant]
     Indication: CONSTIPATION
     Dosage: DAILY DOSE: 3000MG
     Route: 048
     Dates: start: 20110303
  7. LANSOPRAZOLE-OD TAB [Concomitant]
     Indication: REFLUX OESOPHAGITIS
     Dosage: DAILY DOSE: 15MG
     Route: 048
     Dates: start: 20110303

REACTIONS (2)
  - NEUTROPHIL COUNT DECREASED [None]
  - DRUG HYPERSENSITIVITY [None]
